FAERS Safety Report 6698833-4 (Version None)
Quarter: 2010Q2

REPORT INFORMATION
  Report Type: 
  Country: None (occurrence: None)
  Receive Date: 20100427
  Receipt Date: 20100421
  Transmission Date: 20101027
  Serious: Yes (Death, Hospitalization, Other)
  Sender: FDA-Public Use
  Company Number: PHHY2010US24615

PATIENT
  Sex: Female
  Weight: 95 kg

DRUGS (12)
  1. EXJADE [Suspect]
     Indication: IRON METABOLISM DISORDER
     Dosage: 500 MG, TID
     Route: 048
     Dates: start: 20091201, end: 20100402
  2. EXJADE [Suspect]
     Indication: HAEMOCHROMATOSIS
  3. DEXAMETHASONE [Concomitant]
  4. NEVANAC [Concomitant]
  5. FLUCONAZOLE [Concomitant]
  6. PRILOSEC [Concomitant]
  7. ACYCLOVIR [Concomitant]
  8. TRAVATAN [Concomitant]
  9. AZOPT [Concomitant]
  10. BACTRIM [Concomitant]
  11. DIAMOX SRC [Concomitant]
  12. STEROIDS NOS [Concomitant]

REACTIONS (26)
  - ALANINE AMINOTRANSFERASE INCREASED [None]
  - ASPARTATE AMINOTRANSFERASE INCREASED [None]
  - BLOOD CHLORIDE INCREASED [None]
  - BLOOD CREATININE INCREASED [None]
  - BLOOD GLUCOSE INCREASED [None]
  - BLOOD MAGNESIUM INCREASED [None]
  - BLOOD SODIUM INCREASED [None]
  - BLOOD UREA INCREASED [None]
  - BRONCHOPNEUMONIA [None]
  - CONFUSIONAL STATE [None]
  - DYSPNOEA [None]
  - GRAND MAL CONVULSION [None]
  - HAEMATOCRIT DECREASED [None]
  - INTRACRANIAL PRESSURE INCREASED [None]
  - JOINT SWELLING [None]
  - LOSS OF CONSCIOUSNESS [None]
  - MALIGNANT NEOPLASM PROGRESSION [None]
  - MUSCULAR WEAKNESS [None]
  - OPTIC NERVE OPERATION [None]
  - PLATELET COUNT DECREASED [None]
  - POSTICTAL STATE [None]
  - PRODUCTIVE COUGH [None]
  - PROTEIN TOTAL DECREASED [None]
  - RED BLOOD CELL COUNT DECREASED [None]
  - WHEEZING [None]
  - WHITE BLOOD CELL COUNT DECREASED [None]
